FAERS Safety Report 14133606 (Version 2)
Quarter: 2017Q4

REPORT INFORMATION
  Report Type: Report from Study
  Country: FR (occurrence: FR)
  Receive Date: 20171027
  Receipt Date: 20171110
  Transmission Date: 20180321
  Serious: Yes (Other)
  Sender: FDA-Public Use
  Company Number: FR-SUN PHARMACEUTICAL INDUSTRIES LTD-2017RR-153313

PATIENT

DRUGS (1)
  1. BACLOFEN. [Suspect]
     Active Substance: BACLOFEN
     Indication: PRODUCT USED FOR UNKNOWN INDICATION
     Dosage: UNK
     Route: 065

REACTIONS (18)
  - Electroencephalogram abnormal [Unknown]
  - Nausea [Unknown]
  - Poisoning deliberate [Unknown]
  - Cardio-respiratory arrest [Unknown]
  - Bradypnoea [Unknown]
  - Hypothermia [Unknown]
  - Bradycardia [Unknown]
  - Electrocardiogram QT prolonged [Unknown]
  - Pneumonia aspiration [Unknown]
  - Restlessness [Unknown]
  - Coma [Unknown]
  - Acute kidney injury [Unknown]
  - Seizure [Unknown]
  - Rhabdomyolysis [Unknown]
  - Hallucination [Unknown]
  - Ataxia [Unknown]
  - Hypotension [Unknown]
  - Tachycardia [Unknown]
